APPROVED DRUG PRODUCT: HYDROXYZINE HYDROCHLORIDE
Active Ingredient: HYDROXYZINE HYDROCHLORIDE
Strength: 10MG
Dosage Form/Route: TABLET;ORAL
Application: A040899 | Product #001
Applicant: SUN PHARMACEUTICAL INDUSTRIES INC
Approved: Jun 10, 2008 | RLD: No | RS: No | Type: DISCN